FAERS Safety Report 10578510 (Version 1)
Quarter: 2014Q4

REPORT INFORMATION
  Report Type: Spontaneous
  Country: CH (occurrence: CH)
  Receive Date: 20141112
  Receipt Date: 20141112
  Transmission Date: 20150529
  Serious: Yes (Hospitalization)
  Sender: FDA-Public Use
  Company Number: CH-TEVA-520491ISR

PATIENT
  Age: 27 Year
  Sex: Male
  Weight: 80 kg

DRUGS (5)
  1. PANPRAX [Suspect]
     Active Substance: PANTOPRAZOLE SODIUM
     Indication: DYSPEPSIA
     Dosage: 40 MILLIGRAM DAILY;
     Route: 048
     Dates: start: 20140825, end: 20140828
  2. NOVALGIN [Suspect]
     Active Substance: METAMIZOLE SODIUM
     Indication: CHEST PAIN
     Dosage: PRESCRIBED DOSE: 2 TO 4 G/DAY
     Route: 048
     Dates: start: 20140825, end: 20140828
  3. MOTILIUM [Suspect]
     Active Substance: DOMPERIDONE
     Indication: NAUSEA
     Dosage: 30 MILLIGRAM DAILY;
     Route: 048
     Dates: start: 20140825, end: 20140828
  4. IRFEN [Suspect]
     Active Substance: IBUPROFEN
     Indication: CHEST PAIN
     Dosage: 1600 MILLIGRAM DAILY;
     Route: 048
     Dates: start: 20140825, end: 20140828
  5. MOTILIUM [Suspect]
     Active Substance: DOMPERIDONE
     Indication: VOMITING

REACTIONS (2)
  - Acute kidney injury [Recovering/Resolving]
  - Rhabdomyolysis [Recovering/Resolving]

NARRATIVE: CASE EVENT DATE: 20140828
